FAERS Safety Report 6771357-1 (Version None)
Quarter: 2010Q2

REPORT INFORMATION
  Report Type: 
  Country: None (occurrence: None)
  Receive Date: 20100616
  Receipt Date: 20100609
  Transmission Date: 20101027
  Serious: Yes (Hospitalization)
  Sender: FDA-Public Use
  Company Number: FR-BRISTOL-MYERS SQUIBB COMPANY-15148216

PATIENT
  Age: 49 Year
  Sex: Female

DRUGS (6)
  1. GLUCOVANCE [Suspect]
     Dosage: 2 DF = 500MG/2.5MG
     Route: 048
     Dates: start: 20100507, end: 20100512
  2. VICTOZA [Concomitant]
     Route: 058
     Dates: start: 20100507, end: 20100509
  3. CRESTOR [Concomitant]
  4. LEVOTHYROXINE SODIUM [Concomitant]
  5. KARDEGIC [Concomitant]
  6. NOVOMIX [Concomitant]

REACTIONS (2)
  - ABDOMINAL DISTENSION [None]
  - NAUSEA [None]
